FAERS Safety Report 8339716-3 (Version None)
Quarter: 2012Q2

REPORT INFORMATION
  Report Type: 
  Country: None (occurrence: None)
  Receive Date: 20120507
  Receipt Date: 20120430
  Transmission Date: 20120825
  Serious: Yes (Other)
  Sender: FDA-Public Use
  Company Number: PHHY2011CA23620

PATIENT
  Sex: Female

DRUGS (2)
  1. ZOLEDRONOC ACID [Suspect]
     Indication: OSTEOPOROSIS
     Route: 042
     Dates: start: 20110303
  2. ZOLEDRONOC ACID [Suspect]
     Route: 042
     Dates: start: 20120322

REACTIONS (5)
  - FOOT FRACTURE [None]
  - ORAL PAIN [None]
  - ARTHRALGIA [None]
  - PAIN IN JAW [None]
  - HEADACHE [None]
